FAERS Safety Report 19406217 (Version 6)
Quarter: 2021Q4

REPORT INFORMATION
  Report Type: Spontaneous
  Country: US (occurrence: US)
  Receive Date: 20210612
  Receipt Date: 20211213
  Transmission Date: 20220303
  Serious: No
  Sender: FDA-Public Use
  Company Number: US-GLAXOSMITHKLINE-US2021123566

PATIENT
  Sex: Female

DRUGS (7)
  1. ZEJULA [Suspect]
     Active Substance: NIRAPARIB
     Indication: Fallopian tube cancer
     Dosage: 100 MG, TID
     Route: 048
     Dates: start: 20210529
  2. ZEJULA [Suspect]
     Active Substance: NIRAPARIB
     Dosage: 100 MG, QD
  3. ZEJULA [Suspect]
     Active Substance: NIRAPARIB
     Dosage: 200 MG PO DAILY
  4. ZEJULA [Suspect]
     Active Substance: NIRAPARIB
     Dosage: 200 MG, QD
     Route: 048
  5. ZEJULA [Suspect]
     Active Substance: NIRAPARIB
     Dosage: 200 MG, QD
     Route: 048
  6. INFLUENZA VIRUS VACCINE [Suspect]
     Active Substance: INFLUENZA VIRUS VACCINE
     Indication: Prophylaxis
     Dosage: UNK
  7. COVID-19 VACCINE NOS [Suspect]
     Active Substance: COVID-19 VACCINE NOS
     Indication: COVID-19 prophylaxis

REACTIONS (20)
  - Hypertension [Recovering/Resolving]
  - Blood sodium decreased [Not Recovered/Not Resolved]
  - Anxiety [Unknown]
  - Lymphoedema [Recovered/Resolved]
  - Fatigue [Unknown]
  - Asthenia [Unknown]
  - Photophobia [Unknown]
  - Eye disorder [Unknown]
  - Blood chloride decreased [Not Recovered/Not Resolved]
  - Carbohydrate antigen 125 increased [Not Recovered/Not Resolved]
  - Catheter management [Not Recovered/Not Resolved]
  - Red blood cell count decreased [Unknown]
  - Gait inability [Unknown]
  - Janus kinase 2 mutation [Unknown]
  - Platelet count increased [Unknown]
  - Osteopenia [Unknown]
  - Dyspnoea [Unknown]
  - Herpes virus infection [Unknown]
  - Constipation [Unknown]
  - Off label use [Unknown]
